FAERS Safety Report 9548365 (Version 3)
Quarter: 2014Q2

REPORT INFORMATION
  Report Type: Spontaneous
  Country: US (occurrence: US)
  Receive Date: 20130924
  Receipt Date: 20140402
  Transmission Date: 20141212
  Serious: Yes (Hospitalization)
  Sender: FDA-Public Use
  Company Number: US-SANOFI-AVENTIS-2013SA093684

PATIENT
  Age: 5 Year
  Sex: Female
  Weight: 20 kg

DRUGS (3)
  1. CEREZYME [Suspect]
     Indication: GAUCHER^S DISEASE
     Dosage: DOSE : 1 (UNITS NOT PROVIDED) DOSE:60 UNIT(S)/KILOGRAM BODYWEIGHT
     Route: 042
     Dates: start: 20130816
  2. BENADRYL [Concomitant]
     Indication: PREMEDICATION
     Route: 048
     Dates: start: 20130911
  3. CORTICOSTEROID NOS [Concomitant]
     Route: 042
     Dates: start: 2013

REACTIONS (4)
  - Bone pain [Recovered/Resolved]
  - Pyrexia [Recovered/Resolved]
  - Immobile [Recovered/Resolved]
  - Bone disorder [Recovered/Resolved]
